FAERS Safety Report 10167291 (Version 2)
Quarter: 2014Q2

REPORT INFORMATION
  Report Type: Spontaneous
  Country: TR (occurrence: TR)
  Receive Date: 20140512
  Receipt Date: 20140530
  Transmission Date: 20141212
  Serious: Yes (Other)
  Sender: FDA-Public Use
  Company Number: PHHY2014TR057049

PATIENT
  Sex: Male

DRUGS (3)
  1. AFINITOR [Suspect]
     Indication: RENAL CELL CARCINOMA
  2. AFINITOR [Suspect]
     Indication: HEPATOCELLULAR CARCINOMA
  3. AFINITOR [Suspect]
     Indication: OFF LABEL USE

REACTIONS (2)
  - Hepatic failure [Recovering/Resolving]
  - Blood bilirubin decreased [Unknown]
